FAERS Safety Report 8712124 (Version 3)
Quarter: 2015Q2

REPORT INFORMATION
  Report Type: Report from Study
  Country: US (occurrence: US)
  Receive Date: 20120807
  Receipt Date: 20150608
  Transmission Date: 20150821
  Serious: Yes (Death)
  Sender: FDA-Public Use
  Company Number: US-ROCHE-1097554

PATIENT
  Sex: Male

DRUGS (10)
  1. ACTIVASE [Suspect]
     Active Substance: ALTEPLASE
     Indication: PULMONARY EMBOLISM
     Route: 040
  2. EPINEPHRINE. [Concomitant]
     Active Substance: EPINEPHRINE
     Route: 042
  3. PHENYTOIN. [Concomitant]
     Active Substance: PHENYTOIN
     Route: 042
  4. CALCIUM CHLORIDE. [Concomitant]
     Active Substance: CALCIUM CHLORIDE
     Route: 065
  5. SODIUM CHLORIDE. [Concomitant]
     Active Substance: SODIUM CHLORIDE
     Route: 042
  6. ACTIVASE [Suspect]
     Active Substance: ALTEPLASE
     Indication: PULMONARY INFARCTION
  7. VASOPRESSIN. [Concomitant]
     Active Substance: VASOPRESSIN
     Route: 065
  8. SODIUM BICARBONATE. [Concomitant]
     Active Substance: SODIUM BICARBONATE
     Route: 042
  9. DOPAMINE [Concomitant]
     Active Substance: DOPAMINE\DOPAMINE HYDROCHLORIDE
     Route: 042
  10. ATROPINE [Concomitant]
     Active Substance: ATROPINE
     Route: 042

REACTIONS (1)
  - Death [Fatal]
